FAERS Safety Report 10145398 (Version 1)
Quarter: 2014Q2

REPORT INFORMATION
  Report Type: Spontaneous
  Country: US (occurrence: US)
  Receive Date: 20140501
  Receipt Date: 20140501
  Transmission Date: 20141212
  Serious: No
  Sender: FDA-Public Use
  Company Number: US-BIOGENIDEC-2014BI038066

PATIENT
  Sex: Female

DRUGS (5)
  1. TECFIDERA [Suspect]
     Indication: PRODUCT USED FOR UNKNOWN INDICATION
     Dates: start: 201310
  2. ADVAIR DISKUS [Concomitant]
  3. ALBUTEROL SULFATE [Concomitant]
  4. PROZAC [Concomitant]
  5. TRI-SPRINTEC [Concomitant]

REACTIONS (9)
  - Tension headache [Unknown]
  - Pain in extremity [Unknown]
  - Memory impairment [Unknown]
  - Musculoskeletal pain [Unknown]
  - Monocyte count increased [Unknown]
  - Headache [Unknown]
  - Lymphocyte count decreased [Unknown]
  - Flushing [Unknown]
  - White blood cell count decreased [Unknown]
